FAERS Safety Report 7673820-8 (Version None)
Quarter: 2011Q3

REPORT INFORMATION
  Report Type: 
  Country: None (occurrence: None)
  Receive Date: 20110810
  Receipt Date: 20110803
  Transmission Date: 20111222
  Serious: Yes (Hospitalization)
  Sender: FDA-Public Use
  Company Number: DE-JNJFOC-200111-0995

PATIENT
  Sex: Male
  Weight: 21 kg

DRUGS (9)
  1. BENADRYL [Suspect]
     Indication: PRODUCT USED FOR UNKNOWN INDICATION
     Dosage: DAILY DOSE TEXT: SEVERAL TIMES DAILY
     Route: 048
     Dates: start: 19981019
  2. ACETYLCYSTEINE [Suspect]
     Indication: PRODUCT USED FOR UNKNOWN INDICATION
     Dosage: DAILY DOSE TEXT: ONCE DAILY
     Route: 048
     Dates: start: 19981021, end: 19981024
  3. CEFPODOXIME PROXETIL [Suspect]
     Indication: PNEUMONIA
     Dosage: DAILY DOSE TEXT: 120 MG DAILY
     Route: 048
     Dates: start: 19981021, end: 19981025
  4. SPASMO-MUCOSOLVAN [Suspect]
     Indication: PNEUMONIA
     Dosage: DAILY DOSE TEXT: 20 MILLILITERS
     Route: 048
     Dates: start: 19981025
  5. AMOXICILLIN AND CLAVULANATE POTASSIUM [Suspect]
     Indication: PNEUMONIA
     Dosage: DAILY DOSE TEXT: 24 MILLILITERS
     Route: 048
     Dates: start: 19981025, end: 19981027
  6. DYNEXAN [Concomitant]
     Dates: start: 19981026
  7. AMBROXOL HYDROCHLORIDE [Suspect]
     Indication: PRODUCT USED FOR UNKNOWN INDICATION
     Dosage: DAILY DOSE TEXT: 7.5 MILLILITERS
     Route: 048
     Dates: start: 19981018, end: 19981024
  8. PHENOXYMETHYLPENICILLIN [Suspect]
     Indication: PYREXIA
     Dosage: DAILY DOSE TEXT: 3 TABLESPOONS
     Route: 048
     Dates: start: 19981018
  9. YEAST DRIED [Concomitant]
     Dates: start: 19981026

REACTIONS (2)
  - STEVENS-JOHNSON SYNDROME [None]
  - PNEUMONIA MYCOPLASMAL [None]
